FAERS Safety Report 4790983-2 (Version None)
Quarter: 2005Q4

REPORT INFORMATION
  Report Type: 
  Country: None (occurrence: None)
  Receive Date: 20051005
  Receipt Date: 20050919
  Transmission Date: 20060501
  Serious: Yes (Death)
  Sender: FDA-Public Use
  Company Number: DSA_70762_2005

PATIENT
  Age: 15 Month
  Sex: Male

DRUGS (1)
  1. METHADONE [Suspect]
     Dosage: DF PO
     Route: 048

REACTIONS (3)
  - ACCIDENTAL EXPOSURE [None]
  - OVERDOSE [None]
  - RESPIRATORY ARREST [None]
